FAERS Safety Report 5245255-9 (Version None)
Quarter: 2007Q1

REPORT INFORMATION
  Report Type: 
  Country: None (occurrence: None)
  Receive Date: 20070223
  Receipt Date: 20070215
  Transmission Date: 20070707
  Serious: Yes (Hospitalization)
  Sender: FDA-Public Use
  Company Number: JP-MERCK-0701USA04989

PATIENT
  Age: 46 Year
  Sex: Female

DRUGS (4)
  1. TRYPTANOL [Suspect]
     Indication: PAIN IN EXTREMITY
     Route: 048
     Dates: start: 20070109, end: 20070116
  2. NEUROTROPIN [Concomitant]
     Indication: PAIN IN EXTREMITY
     Route: 048
     Dates: start: 20061128, end: 20070116
  3. LEXIN [Suspect]
     Indication: PAIN IN EXTREMITY
     Route: 048
     Dates: start: 20061128, end: 20070116
  4. NOVORAPID [Concomitant]
     Indication: DIABETES MELLITUS
     Route: 058
     Dates: start: 20060128

REACTIONS (5)
  - ALANINE AMINOTRANSFERASE INCREASED [None]
  - ASPARTATE AMINOTRANSFERASE INCREASED [None]
  - BLOOD ALKALINE PHOSPHATASE INCREASED [None]
  - GAMMA-GLUTAMYLTRANSFERASE INCREASED [None]
  - LIVER DISORDER [None]
